FAERS Safety Report 7830011-5 (Version None)
Quarter: 2011Q4

REPORT INFORMATION
  Report Type: 
  Country: None (occurrence: None)
  Receive Date: 20111021
  Receipt Date: 20111013
  Transmission Date: 20120403
  Serious: Yes (Death, Hospitalization, Other)
  Sender: FDA-Public Use
  Company Number: FR-UCBSA-043387

PATIENT
  Age: 86 Year
  Sex: Female

DRUGS (2)
  1. KEPPRA [Suspect]
     Dosage: 1G
     Route: 048
     Dates: start: 20090101, end: 20090101
  2. KEPPRA [Suspect]

REACTIONS (2)
  - DEATH [None]
  - COMA [None]
